FAERS Safety Report 4465039-9 (Version None)
Quarter: 2004Q4

REPORT INFORMATION
  Report Type: 
  Country: None (occurrence: None)
  Receive Date: 20041004
  Receipt Date: 20040913
  Transmission Date: 20050328
  Serious: Yes (Other)
  Sender: FDA-Public Use
  Company Number: PHEH2004US09812

PATIENT
  Age: 82 Year
  Sex: Female

DRUGS (9)
  1. ZELNORM [Suspect]
     Indication: IRRITABLE BOWEL SYNDROME
     Dosage: UNK, UNK
     Route: 048
     Dates: start: 20020101, end: 20020101
  2. ZELNORM [Suspect]
     Dates: start: 20020101, end: 20020101
  3. INDERAL [Concomitant]
     Indication: HYPERTENSION
     Dosage: 40 MG, BID
     Route: 048
  4. ALDACTAZIDE [Concomitant]
     Indication: HYPERTENSION
  5. PLAQUENIL [Concomitant]
     Indication: RHEUMATOID ARTHRITIS
  6. DICLOFENAC SODIUM [Concomitant]
     Indication: RHEUMATOID ARTHRITIS
  7. MEVACOR [Concomitant]
     Indication: BLOOD CHOLESTEROL INCREASED
  8. GLUCOSAMINE W/CHONDROITIN [Concomitant]
     Indication: ARTHROPATHY
  9. OMEGA 3 [Concomitant]
     Indication: ARTHROPATHY

REACTIONS (2)
  - DIARRHOEA [None]
  - RECTAL HAEMORRHAGE [None]
